FAERS Safety Report 9366091 (Version 4)
Quarter: 2013Q3

REPORT INFORMATION
  Report Type: Spontaneous
  Country: US (occurrence: US)
  Receive Date: 20130625
  Receipt Date: 20130711
  Transmission Date: 20140515
  Serious: No
  Sender: FDA-Public Use
  Company Number: US-VERTEX PHARMACEUTICALS INC-2013-007275

PATIENT
  Age: 55 Year
  Sex: Female
  Weight: 56 kg

DRUGS (6)
  1. INCIVEK [Suspect]
     Indication: HEPATITIS C
     Dosage: 750 MG, TID
     Route: 048
     Dates: start: 20130619
  2. RIBAVIRIN [Suspect]
     Indication: HEPATITIS C
     Dosage: 2 DF, BID
     Dates: start: 20130619
  3. RIBAVIRIN [Suspect]
     Dosage: 2 DF AT 6 AM, 1 DF AT 2 PM AND 1 DF AT 10 PM
  4. PEGASYS [Suspect]
     Indication: HEPATITIS C
     Dosage: 180 ?G, QW
     Route: 058
     Dates: start: 20130619
  5. VALIUM [Concomitant]
     Indication: ANXIETY
     Dosage: 2 MG, PRN
  6. VITAMIN B12 [Concomitant]
     Dosage: UNK, QD

REACTIONS (11)
  - Neuropathy peripheral [Not Recovered/Not Resolved]
  - Mood swings [Not Recovered/Not Resolved]
  - Dyspnoea [Recovered/Resolved]
  - Paraesthesia [Not Recovered/Not Resolved]
  - Swollen tongue [Recovered/Resolved]
  - Myalgia [Not Recovered/Not Resolved]
  - Arthralgia [Not Recovered/Not Resolved]
  - Gout [Unknown]
  - Local swelling [Not Recovered/Not Resolved]
  - Rash erythematous [Not Recovered/Not Resolved]
  - Pruritus [Not Recovered/Not Resolved]
